FAERS Safety Report 9878763 (Version 2)
Quarter: 2014Q2

REPORT INFORMATION
  Report Type: Spontaneous
  Country: US (occurrence: US)
  Receive Date: 20140206
  Receipt Date: 20140401
  Transmission Date: 20141212
  Serious: Yes (Other)
  Sender: FDA-Public Use
  Company Number: US-GLAXOSMITHKLINE-A1058690A

PATIENT
  Sex: Male

DRUGS (4)
  1. VENTOLIN HFA [Suspect]
     Indication: ASTHMA
     Dosage: 1PUFF TWICE PER DAY
     Route: 055
     Dates: start: 2013
  2. SINGULAIR [Concomitant]
  3. CLARITIN [Concomitant]
  4. INHALER [Concomitant]

REACTIONS (4)
  - Foreign body aspiration [Recovered/Resolved]
  - Suffocation feeling [Recovered/Resolved]
  - Dyspnoea [Recovered/Resolved]
  - Product quality issue [Unknown]
